FAERS Safety Report 7649587-6 (Version None)
Quarter: 2011Q3

REPORT INFORMATION
  Report Type: 
  Country: None (occurrence: None)
  Receive Date: 20110802
  Receipt Date: 20110719
  Transmission Date: 20111222
  Serious: Yes (Hospitalization)
  Sender: FDA-Public Use
  Company Number: US-JNJFOC-20110711808

PATIENT
  Sex: Male
  Weight: 90.72 kg

DRUGS (5)
  1. REMICADE [Suspect]
     Indication: PSORIATIC ARTHROPATHY
     Route: 042
     Dates: start: 20070101
  2. REMICADE [Suspect]
     Route: 042
     Dates: start: 20110623
  3. METHOTREXATE [Concomitant]
     Dates: start: 19860101
  4. PREDNISONE [Concomitant]
     Indication: DERMATOMYOSITIS
     Dates: start: 20110401
  5. PREDNISONE [Concomitant]

REACTIONS (9)
  - DERMATOMYOSITIS [None]
  - MUSCLE ENZYME INCREASED [None]
  - LOSS OF CONSCIOUSNESS [None]
  - ARTHRALGIA [None]
  - ANAEMIA [None]
  - LABORATORY TEST ABNORMAL [None]
  - MONOCYTE COUNT INCREASED [None]
  - LUPUS-LIKE SYNDROME [None]
  - FATIGUE [None]
